FAERS Safety Report 9029312 (Version 1)
Quarter: 2013Q1

REPORT INFORMATION
  Report Type: Spontaneous
  Country: US (occurrence: US)
  Receive Date: 20130124
  Receipt Date: 20130124
  Transmission Date: 20140127
  Serious: No
  Sender: FDA-Public Use
  Company Number: US-TARO-2012P1049363

PATIENT
  Age: 22 Year
  Sex: Female
  Weight: 68.04 kg

DRUGS (3)
  1. DESOXIMETASONE [Suspect]
     Indication: ECZEMA
     Route: 061
     Dates: start: 201201, end: 201207
  2. DESOXIMETASONE [Suspect]
     Indication: ECZEMA
     Route: 061
     Dates: start: 201207
  3. BIRTH CONTROL [Concomitant]

REACTIONS (1)
  - Drug ineffective [Not Recovered/Not Resolved]
